FAERS Safety Report 17251591 (Version 2)
Quarter: 2020Q1

REPORT INFORMATION
  Report Type: Spontaneous
  Country: US (occurrence: US)
  Receive Date: 20200109
  Receipt Date: 20200218
  Transmission Date: 20200409
  Serious: No
  Sender: FDA-Public Use
  Company Number: US-JNJFOC-20200105492

PATIENT
  Age: 47 Year
  Sex: Female

DRUGS (2)
  1. DITROPAN XL [Suspect]
     Active Substance: OXYBUTYNIN CHLORIDE
     Indication: URINARY INCONTINENCE
     Route: 048
  2. DITROPAN XL [Suspect]
     Active Substance: OXYBUTYNIN CHLORIDE
     Dosage: EXTENDED RELEASE 24 HR TABLETS
     Route: 048

REACTIONS (1)
  - Drug ineffective [Unknown]

NARRATIVE: CASE EVENT DATE: 20191228
